FAERS Safety Report 5374359-5 (Version None)
Quarter: 2007Q2

REPORT INFORMATION
  Report Type: 
  Country: None (occurrence: None)
  Receive Date: 20070629
  Receipt Date: 20070622
  Transmission Date: 20071010
  Serious: Yes (Hospitalization, Congenital Anomaly, Other)
  Sender: FDA-Public Use
  Company Number: PHRM2006FR02929

PATIENT
  Age: 1 Day
  Sex: Male
  Weight: 2.77 kg

DRUGS (3)
  1. VOLTAREN [Suspect]
     Dosage: MATERNAL DOSE: 75 MG BID THEN 100 MG
     Route: 064
  2. SALAZOPYRINE [Suspect]
     Route: 064
  3. OGAST [Suspect]
     Dosage: MATERNAL DOSE: 15 MG/DAY
     Route: 064

REACTIONS (13)
  - BLOOD BILIRUBIN INCREASED [None]
  - CONGENITAL GENITOURINARY ABNORMALITY [None]
  - CONGENITAL PYELOCALIECTASIS [None]
  - DRUG EXPOSURE DURING PREGNANCY [None]
  - FEEDING DISORDER NEONATAL [None]
  - JAUNDICE NEONATAL [None]
  - NAUSEA [None]
  - PELVI-URETERIC OBSTRUCTION [None]
  - PENIS DISORDER [None]
  - PHOTOTHERAPY [None]
  - PREMATURE BABY [None]
  - ULTRASOUND KIDNEY ABNORMAL [None]
  - WEIGHT DECREASED [None]
